FAERS Safety Report 4885430-6 (Version None)
Quarter: 2005Q4

REPORT INFORMATION
  Report Type: 
  Country: None (occurrence: None)
  Receive Date: 20051220
  Receipt Date: 20051006
  Transmission Date: 20060501
  Serious: Yes (Other)
  Sender: FDA-Public Use
  Company Number: HQWYE943210OCT05

PATIENT
  Age: 53 Year
  Sex: Male

DRUGS (1)
  1. EFFEXOR XR [Suspect]
     Dates: start: 20040301

REACTIONS (1)
  - SUICIDAL IDEATION [None]
